FAERS Safety Report 4364193-7 (Version None)
Quarter: 2004Q2

REPORT INFORMATION
  Report Type: 
  Country: None (occurrence: None)
  Receive Date: 20040519
  Receipt Date: 20040504
  Transmission Date: 20050107
  Serious: Yes (Hospitalization)
  Sender: FDA-Public Use
  Company Number: 2003-BP-00738RO

PATIENT
  Age: 52 Year
  Sex: Female

DRUGS (3)
  1. PREDNISONE TAB [Suspect]
     Indication: KIDNEY TRANSPLANT REJECTION
     Dosage: PO
     Route: 048
     Dates: start: 20021020
  2. BMS224818 (BMS224818 - INVESTIGATIONAL) [Suspect]
     Indication: KIDNEY TRANSPLANT REJECTION
     Dosage: 580 MG, IV
     Route: 042
     Dates: start: 20021018
  3. CELLCEPT [Suspect]
     Indication: KIDNEY TRANSPLANT REJECTION
     Dates: start: 20021019

REACTIONS (1)
  - BLOOD CREATININE INCREASED [None]
